FAERS Safety Report 10759995 (Version 1)
Quarter: 2015Q1

REPORT INFORMATION
  Report Type: Spontaneous
  Country: US (occurrence: US)
  Receive Date: 20150203
  Receipt Date: 20150203
  Transmission Date: 20150721
  Serious: Yes (Hospitalization, Other)
  Sender: FDA-Public Use
  Company Number: PHHY2015US010497

PATIENT
  Age: 43 Year
  Sex: Female

DRUGS (2)
  1. METHADONE [Suspect]
     Active Substance: METHADONE HYDROCHLORIDE
     Indication: PRODUCT USED FOR UNKNOWN INDICATION
     Route: 065
  2. DIAZEPAM. [Suspect]
     Active Substance: DIAZEPAM
     Indication: PRODUCT USED FOR UNKNOWN INDICATION
     Dosage: 50 DF (40 TO 50 TABLETS)
     Route: 065

REACTIONS (15)
  - Memory impairment [Recovered/Resolved]
  - Blood potassium increased [Recovered/Resolved]
  - Overdose [Unknown]
  - Disorientation [Recovered/Resolved]
  - Confusional state [Recovered/Resolved]
  - Lethargy [Recovered/Resolved]
  - Unresponsive to stimuli [Recovered/Resolved]
  - Leukocytosis [Recovered/Resolved]
  - Pneumonia aspiration [Recovered/Resolved]
  - Hypoxic-ischaemic encephalopathy [Recovered/Resolved]
  - Social avoidant behaviour [Recovered/Resolved]
  - Gait disturbance [Recovered/Resolved]
  - Suicide attempt [Unknown]
  - Hypoxia [Recovered/Resolved]
  - Incontinence [Recovered/Resolved]
